FAERS Safety Report 8121563-9 (Version None)
Quarter: 2012Q1

REPORT INFORMATION
  Report Type: 
  Country: None (occurrence: None)
  Receive Date: 20120208
  Receipt Date: 20120206
  Transmission Date: 20120608
  Serious: No
  Sender: FDA-Public Use
  Company Number: US-TEVA-319574USA

PATIENT
  Sex: Female
  Weight: 47.216 kg

DRUGS (2)
  1. TRIAMCINOLONE [Concomitant]
     Indication: ECZEMA
  2. PLAN B ONE-STEP [Suspect]
     Indication: POST COITAL CONTRACEPTION
     Dosage: 1.5 MILLIGRAM;
     Route: 048
     Dates: start: 20120115, end: 20120115

REACTIONS (3)
  - BREAST TENDERNESS [None]
  - MENSTRUATION IRREGULAR [None]
  - PELVIC PAIN [None]
